FAERS Safety Report 25364835 (Version 2)
Quarter: 2025Q2

REPORT INFORMATION
  Report Type: Spontaneous
  Country: US (occurrence: US)
  Receive Date: 20250527
  Receipt Date: 20250604
  Transmission Date: 20250717
  Serious: No
  Sender: IDORSIA PHARMACEUTICALS
  Company Number: US-IDORSIA-010425-2025-US

PATIENT
  Age: 69 Year
  Sex: Female

DRUGS (1)
  1. QUVIVIQ [Suspect]
     Active Substance: DARIDOREXANT
     Indication: Insomnia
     Dosage: 25 MG, QD
     Route: 048
     Dates: start: 202505, end: 202505

REACTIONS (3)
  - Hallucination [Recovered/Resolved]
  - Drug ineffective [Unknown]
  - Product lot number issue [Unknown]

NARRATIVE: CASE EVENT DATE: 20250501
